FAERS Safety Report 4645821-5 (Version None)
Quarter: 2005Q2

REPORT INFORMATION
  Report Type: 
  Country: None (occurrence: None)
  Receive Date: 20050427
  Receipt Date: 20050412
  Transmission Date: 20051028
  Serious: Yes (Hospitalization)
  Sender: FDA-Public Use
  Company Number: US-KINGPHARMUSA00001-K200500492

PATIENT
  Sex: Male

DRUGS (1)
  1. LORABID [Suspect]
     Indication: ANGINA PECTORIS
     Dosage: 200 MG, BID
     Route: 048
     Dates: start: 20050331, end: 20050404

REACTIONS (4)
  - BONE SWELLING [None]
  - DERMATITIS ALLERGIC [None]
  - DIFFICULTY IN WALKING [None]
  - PAIN IN EXTREMITY [None]
